FAERS Safety Report 7844967-8 (Version None)
Quarter: 2011Q4

REPORT INFORMATION
  Report Type: 
  Country: None (occurrence: None)
  Receive Date: 20111017
  Receipt Date: 20111007
  Transmission Date: 20120403
  Serious: Yes (Life-Threatening, Disabling)
  Sender: FDA-Public Use
  Company Number: 2011SP047732

PATIENT
  Age: 29 Year
  Sex: Female

DRUGS (3)
  1. RIBAVIRIN [Suspect]
     Indication: PRODUCT USED FOR UNKNOWN INDICATION
     Dates: start: 20110701
  2. PEGASYS [Suspect]
     Indication: PRODUCT USED FOR UNKNOWN INDICATION
     Dates: start: 20110701
  3. VICTRELIS [Suspect]
     Indication: HEPATITIS C
     Dosage: 200 MG ; TID; PO
     Route: 048
     Dates: start: 20110701

REACTIONS (3)
  - CHILLS [None]
  - DECREASED APPETITE [None]
  - PAIN [None]
